FAERS Safety Report 17170446 (Version 1)
Quarter: 2019Q4

REPORT INFORMATION
  Report Type: Report from Study
  Country: US (occurrence: US)
  Receive Date: 20191218
  Receipt Date: 20191218
  Transmission Date: 20200122
  Serious: Yes (Hospitalization)
  Sender: FDA-Public Use
  Company Number: US-UCBSA-2019053129

PATIENT
  Age: 0 Year
  Sex: Male
  Weight: 3.3 kg

DRUGS (19)
  1. CERTOLIZUMAB PEGOL RA [Suspect]
     Active Substance: CERTOLIZUMAB PEGOL
     Indication: JUVENILE IDIOPATHIC ARTHRITIS
     Dosage: 200 MILLIGRAM, 2X/MONTH
     Route: 064
     Dates: start: 20181207, end: 20190825
  2. VENLAFAXINE HYDROCHLORIDE. [Concomitant]
     Active Substance: VENLAFAXINE HYDROCHLORIDE
     Indication: DEPRESSION
     Dosage: 187.5 MILLIGRAM, ONCE DAILY (QD)
     Route: 064
     Dates: start: 20181207, end: 20190825
  3. OVIDREL [CHORIONIC GONADOTROPHIN] [Concomitant]
     Indication: OVULATION DISORDER
     Dosage: 5000 INTERNATIONAL UNIT, ONCE DAILY (QD)
     Route: 064
     Dates: start: 20181205, end: 20181205
  4. PREDNISONE. [Concomitant]
     Active Substance: PREDNISONE
     Indication: RHEUMATOID ARTHRITIS
     Dosage: 6 MILLIGRAM, ONCE DAILY (QD)
     Route: 064
     Dates: start: 20181207, end: 20190410
  5. TYLENOL EXTRA STRENGTH [Concomitant]
     Active Substance: ACETAMINOPHEN
     Indication: ARTHRALGIA
     Dosage: 2 DOSAGE FORM, WEEKLY (QW)
     Route: 064
     Dates: start: 20190802, end: 20190825
  6. INFLUENZA VACCINE [Concomitant]
     Active Substance: INFLUENZA VIRUS VACCINE
     Indication: IMMUNISATION
     Dosage: 1 DOSAGE FORM, ONE TIME DOSE
     Route: 064
     Dates: start: 20181030, end: 20181030
  7. IRON [Concomitant]
     Active Substance: IRON
     Indication: BLOOD IRON DECREASED
     Dosage: 1 DOSAGE FORM, ONCE DAILY (QD)
     Route: 064
     Dates: start: 20190715, end: 20190715
  8. PRENATAL VITAMINS [MINERALS NOS;VITAMINS NOS] [Concomitant]
     Active Substance: MINERALS\VITAMINS
     Indication: PRODUCT USED FOR UNKNOWN INDICATION
     Dosage: 1 DOSAGE FORM, ONCE DAILY (QD)
     Route: 064
     Dates: start: 20181207, end: 20190825
  9. BABY ASPIRIN [Concomitant]
     Active Substance: ASPIRIN
     Indication: ABORTION SPONTANEOUS
     Dosage: 81 MILLIGRAM, ONCE DAILY (QD)
     Route: 064
     Dates: start: 20181207, end: 20190825
  10. CALCIUM CITRATE [Concomitant]
     Active Substance: CALCIUM CITRATE
     Indication: PRODUCT USED FOR UNKNOWN INDICATION
     Dosage: 600 MILLIGRAM, ONCE DAILY (QD) TO OFF BALANCE PREDNISONE USE
     Route: 064
     Dates: start: 20190603, end: 20190825
  11. DHA [Concomitant]
     Active Substance: DIETARY SUPPLEMENT
     Indication: PRODUCT USED FOR UNKNOWN INDICATION
     Dosage: 1 DOSAGE FORM, ONCE DAILY (QD)
     Route: 064
     Dates: start: 20181207
  12. GLUCOSE TOLERANCE [Concomitant]
     Indication: GLUCOSE TOLERANCE TEST
     Dosage: UNK
     Route: 064
     Dates: start: 20190509, end: 20190509
  13. PROGESTERONE. [Concomitant]
     Active Substance: PROGESTERONE
     Indication: ARTIFICIAL INSEMINATION
     Dosage: 50 MILLIGRAM, 2X/DAY (BID)
     Route: 064
     Dates: start: 20181209, end: 20190218
  14. PREDNISONE. [Concomitant]
     Active Substance: PREDNISONE
     Dosage: 3 MILLIGRAM, ONCE DAILY (QD)
     Route: 064
     Dates: start: 20190411, end: 20190623
  15. TDAP IMMUN [Concomitant]
     Active Substance: DIPHTHERIA AND TETANUS TOXOIDS AND ACELLULAR PERTUSSIS VACCINE ADSORBED
     Indication: PRODUCT USED FOR UNKNOWN INDICATION
     Dosage: 1 DOSAGE FORM, ONCE DAILY (QD)
     Route: 064
     Dates: start: 20190716, end: 20190716
  16. PREDNISONE. [Concomitant]
     Active Substance: PREDNISONE
     Dosage: 5 MILLIGRAM, ONCE DAILY (QD)
     Route: 064
     Dates: start: 20190624, end: 20190825
  17. FOLLISTIM [Concomitant]
     Active Substance: FOLLITROPIN
     Indication: INFERTILITY
     Dosage: 100 INTERNATIONAL UNIT, ONCE DAILY (QD)
     Route: 064
     Dates: start: 20181127, end: 20181204
  18. HEPARIN [Concomitant]
     Active Substance: HEPARIN SODIUM
     Indication: ARTIFICIAL INSEMINATION
     Dosage: 5000 INTERNATIONAL UNIT, 2X/DAY (BID)
     Route: 064
     Dates: start: 20190114, end: 20190311
  19. PLAQUENIL [Concomitant]
     Active Substance: HYDROXYCHLOROQUINE SULFATE
     Indication: RHEUMATOID ARTHRITIS
     Dosage: 200 MILLIGRAM, 2X/DAY (BID)
     Route: 064
     Dates: start: 20020701, end: 20190825

REACTIONS (6)
  - Rhinovirus infection [Not Recovered/Not Resolved]
  - Metapneumovirus infection [Not Recovered/Not Resolved]
  - Dehydration [Unknown]
  - Staphylococcal infection [Recovered/Resolved]
  - Blood calcium increased [Recovered/Resolved]
  - Maternal exposure before pregnancy [Unknown]

NARRATIVE: CASE EVENT DATE: 20181207
